APPROVED DRUG PRODUCT: SPECTROBID
Active Ingredient: BACAMPICILLIN HYDROCHLORIDE
Strength: 800MG
Dosage Form/Route: TABLET;ORAL
Application: N050520 | Product #002
Applicant: PFIZER LABORATORIES DIV PFIZER INC
Approved: Sep 12, 1983 | RLD: No | RS: No | Type: DISCN